FAERS Safety Report 6714656-1 (Version None)
Quarter: 2010Q2

REPORT INFORMATION
  Report Type: 
  Country: None (occurrence: None)
  Receive Date: 20100507
  Receipt Date: 20100428
  Transmission Date: 20101027
  Serious: No
  Sender: FDA-Public Use
  Company Number: 2010BI003110

PATIENT
  Age: 54 Year
  Sex: Female

DRUGS (1)
  1. TYSABRI [Suspect]
     Indication: MULTIPLE SCLEROSIS
     Route: 042
     Dates: start: 20090826

REACTIONS (6)
  - HOT FLUSH [None]
  - HYPOTENSION [None]
  - MUSCULAR WEAKNESS [None]
  - PALPITATIONS [None]
  - POOR VENOUS ACCESS [None]
  - SOMNOLENCE [None]
